FAERS Safety Report 6370667-X (Version None)
Quarter: 2009Q3

REPORT INFORMATION
  Report Type: 
  Country: None (occurrence: None)
  Receive Date: 20090923
  Receipt Date: 20070515
  Transmission Date: 20100115
  Serious: Yes (Hospitalization, Disabling)
  Sender: FDA-Public Use
  Company Number: US-ASTRAZENECA-2006UW25165

PATIENT
  Age: 37 Year
  Sex: Male
  Weight: 82.6 kg

DRUGS (20)
  1. SEROQUEL [Suspect]
     Indication: SCHIZOPHRENIA
     Dosage: 25 MG TABLET DISPENSED
     Route: 048
     Dates: start: 19990329
  2. SEROQUEL [Suspect]
     Indication: DEPRESSION
     Dosage: 25 MG TABLET DISPENSED
     Route: 048
     Dates: start: 19990329
  3. SEROQUEL [Suspect]
     Indication: ANXIETY
     Dosage: 25 MG TABLET DISPENSED
     Route: 048
     Dates: start: 19990329
  4. SEROQUEL [Suspect]
     Route: 048
     Dates: start: 20030101, end: 20060101
  5. SEROQUEL [Suspect]
     Route: 048
     Dates: start: 20030101, end: 20060101
  6. SEROQUEL [Suspect]
     Route: 048
     Dates: start: 20030101, end: 20060101
  7. SEROQUEL [Suspect]
     Dosage: 300 MG, 2 TABLET AT NIGHT
     Route: 048
     Dates: start: 20060212, end: 20061017
  8. SEROQUEL [Suspect]
     Dosage: 300 MG, 2 TABLET AT NIGHT
     Route: 048
     Dates: start: 20060212, end: 20061017
  9. SEROQUEL [Suspect]
     Dosage: 300 MG, 2 TABLET AT NIGHT
     Route: 048
     Dates: start: 20060212, end: 20061017
  10. SEROQUEL [Suspect]
     Dosage: 300 MG, 3 TABLET AT NIGHT
     Route: 048
     Dates: start: 20070416
  11. SEROQUEL [Suspect]
     Dosage: 300 MG, 3 TABLET AT NIGHT
     Route: 048
     Dates: start: 20070416
  12. SEROQUEL [Suspect]
     Dosage: 300 MG, 3 TABLET AT NIGHT
     Route: 048
     Dates: start: 20070416
  13. LISINOPRIL [Concomitant]
     Route: 048
     Dates: start: 20060212
  14. ZOLOFT [Concomitant]
     Route: 048
     Dates: start: 20030207
  15. ELAVIL [Concomitant]
     Dosage: 50 MG-100 MG
     Route: 048
     Dates: start: 20030205
  16. RISPERDAL [Concomitant]
     Dosage: 1 MG-3 MG
     Route: 048
     Dates: start: 20000713
  17. PAXIL [Concomitant]
     Dosage: 20 MG DISPENSED
     Dates: start: 19970827
  18. DESYREL [Concomitant]
     Dosage: 50-100 MG
     Dates: start: 19971119
  19. VISTARIL [Concomitant]
     Indication: NAUSEA
     Route: 048
     Dates: start: 20000720
  20. VISTARIL [Concomitant]
     Indication: VOMITING
     Route: 048
     Dates: start: 20000720

REACTIONS (3)
  - DIABETES MELLITUS [None]
  - DIABETIC COMA [None]
  - DIABETIC KETOACIDOSIS [None]
